FAERS Safety Report 8894896 (Version 1)
Quarter: 2012Q4

REPORT INFORMATION
  Report Type: 
  Country: CA (occurrence: CA)
  Receive Date: 20121107
  Receipt Date: 20121107
  Transmission Date: 20130627
  Serious: Yes (Other)
  Sender: FDA-Public Use
  Company Number: PHMT2006CA01595

PATIENT
  Sex: Female

DRUGS (5)
  1. SANDOSTATIN LAR [Suspect]
     Indication: CARCINOID SYNDROME
     Dosage: 20mg intragluteal injection once a month
     Dates: start: 20060623, end: 20060623
  2. SANDOSTATIN (OCTREOTIDE ACETATE) [Suspect]
  3. ATACAND [Concomitant]
  4. SYNTHROID [Concomitant]
  5. VERAPAMIL [Concomitant]

REACTIONS (3)
  - Weight decreased [Not Recovered/Not Resolved]
  - Blood pressure increased [Unknown]
  - Blood pressure systolic increased [Unknown]
